FAERS Safety Report 17346010 (Version 1)
Quarter: 2020Q1

REPORT INFORMATION
  Report Type: Spontaneous
  Country: US (occurrence: US)
  Receive Date: 20200129
  Receipt Date: 20200129
  Transmission Date: 20200409
  Serious: No
  Sender: FDA-Public Use
  Company Number: US-009507513-2001USA008796

PATIENT
  Sex: Female

DRUGS (1)
  1. COZAAR [Suspect]
     Active Substance: LOSARTAN POTASSIUM
     Indication: TYPE 2 DIABETES MELLITUS
     Dosage: TAKE 1 BY MOUTH DAILY
     Route: 048

REACTIONS (1)
  - Product use in unapproved indication [Unknown]
